FAERS Safety Report 24666384 (Version 2)
Quarter: 2024Q4

REPORT INFORMATION
  Report Type: Spontaneous
  Country: JP (occurrence: JP)
  Receive Date: 20241126
  Receipt Date: 20241203
  Transmission Date: 20250115
  Serious: Yes (Other)
  Sender: TAKEDA
  Company Number: JP-JNJFOC-20241142360

PATIENT
  Age: 58 Year
  Sex: Male

DRUGS (3)
  1. VELCADE [Suspect]
     Active Substance: BORTEZOMIB
     Indication: Plasma cell myeloma
     Dosage: 3 MILLIGRAM
  2. LENALIDOMIDE HEMIHYDRATE [Concomitant]
     Active Substance: LENALIDOMIDE HEMIHYDRATE
     Indication: Plasma cell myeloma
     Dosage: UNK
  3. DEXAMETHASONE [Concomitant]
     Active Substance: DEXAMETHASONE
     Indication: Plasma cell myeloma
     Dosage: UNK

REACTIONS (1)
  - Therapeutic product effect incomplete [Unknown]
